FAERS Safety Report 5340018-8 (Version None)
Quarter: 2007Q2

REPORT INFORMATION
  Report Type: 
  Country: None (occurrence: None)
  Receive Date: 20070405
  Receipt Date: 20061101
  Transmission Date: 20071010
  Serious: No
  Sender: FDA-Public Use
  Company Number: US200611000556

PATIENT
  Age: 74 Year
  Sex: Female

DRUGS (2)
  1. CYMBALTA [Suspect]
     Indication: NEUROPATHY
     Dosage: 60 MG, ORAL
     Route: 048
     Dates: start: 20060824
  2. PREGABALIN (PREGABALIN) [Concomitant]

REACTIONS (1)
  - PLATELET COUNT DECREASED [None]
